FAERS Safety Report 8852762 (Version 1)
Quarter: 2012Q4

REPORT INFORMATION
  Report Type: 
  Country: BB (occurrence: BB)
  Receive Date: 20121022
  Receipt Date: 20121022
  Transmission Date: 20130627
  Serious: Yes (Death)
  Sender: FDA-Public Use
  Company Number: BB-B.I. PHARMACEUTICALS,INC./RIDGEFIELD-2012-CN-02127CN

PATIENT
  Age: 97 Year
  Sex: Female

DRUGS (2)
  1. PRADAX [Suspect]
     Indication: DEEP VEIN THROMBOSIS
     Dosage: 150 mg
     Dates: start: 20111015
  2. ACETAMINOPHEN [Concomitant]
     Indication: OSTEOARTHRITIS

REACTIONS (2)
  - Upper gastrointestinal haemorrhage [Fatal]
  - Haematemesis [Unknown]
